FAERS Safety Report 13526930 (Version 3)
Quarter: 2017Q2

REPORT INFORMATION
  Report Type: Spontaneous
  Country: US (occurrence: US)
  Receive Date: 20170509
  Receipt Date: 20170621
  Transmission Date: 20170830
  Serious: Yes (Other)
  Sender: FDA-Public Use
  Company Number: US-ELI_LILLY_AND_COMPANY-US201704010621

PATIENT
  Sex: Female

DRUGS (3)
  1. TYVASO [Suspect]
     Active Substance: TREPROSTINIL
     Dosage: 9 BREATHS/ SESSION, QID
     Route: 055
  2. ADCIRCA [Suspect]
     Active Substance: TADALAFIL
     Indication: PULMONARY ARTERIAL HYPERTENSION
     Dosage: SOME TIMES 20 MG OTHER TIME 40 MG, UNKNOWN
     Route: 065
  3. TYVASO [Suspect]
     Active Substance: TREPROSTINIL
     Indication: PULMONARY ARTERIAL HYPERTENSION
     Dosage: 6 BREATHS/ SESSION (0.6 MG/ML) , QID
     Route: 055
     Dates: start: 20170329

REACTIONS (7)
  - Headache [Unknown]
  - Blister [Unknown]
  - Cough [Unknown]
  - Underdose [Unknown]
  - Oropharyngeal pain [Unknown]
  - Throat irritation [Unknown]
  - Dysphonia [Unknown]
